FAERS Safety Report 13045444 (Version 1)
Quarter: 2016Q4

REPORT INFORMATION
  Report Type: Spontaneous
  Country: US (occurrence: US)
  Receive Date: 20161220
  Receipt Date: 20161220
  Transmission Date: 20170207
  Serious: Yes (Hospitalization, Disabling)
  Sender: FDA-Public Use
  Company Number: None

PATIENT
  Age: 63 Year
  Sex: Female
  Weight: 86.71 kg

DRUGS (14)
  1. PAXIL [Concomitant]
     Active Substance: PAROXETINE HYDROCHLORIDE
  2. VITAMIN D [Concomitant]
     Active Substance: CHOLECALCIFEROL
  3. DOXEPIN HCL 50MG CAP (GENERIC FOR SINEQUAN ) [Suspect]
     Active Substance: DOXEPIN HYDROCHLORIDE
     Indication: MAJOR DEPRESSION
     Dosage: FREQUENCY - ONCE DAILY PO
     Route: 048
     Dates: start: 20161122, end: 20161201
  4. CALCIUM [Concomitant]
     Active Substance: CALCIUM
  5. ASPIRIN. [Concomitant]
     Active Substance: ASPIRIN
  6. DOXEPIN HCL 50MG CAP (GENERIC FOR SINEQUAN ) [Suspect]
     Active Substance: DOXEPIN HYDROCHLORIDE
     Indication: ANXIETY
     Dosage: FREQUENCY - ONCE DAILY PO
     Route: 048
     Dates: start: 20161122, end: 20161201
  7. LORAZEPAM. [Concomitant]
     Active Substance: LORAZEPAM
  8. VITAMIN B12 [Concomitant]
     Active Substance: CYANOCOBALAMIN
  9. OMEPRAZOLE. [Concomitant]
     Active Substance: OMEPRAZOLE
  10. VITAMIN C [Concomitant]
     Active Substance: ASCORBIC ACID
  11. DOXEPIN HCL 50MG CAP (GENERIC FOR SINEQUAN ) [Suspect]
     Active Substance: DOXEPIN HYDROCHLORIDE
     Indication: PANIC DISORDER
     Dosage: FREQUENCY - ONCE DAILY PO
     Route: 048
     Dates: start: 20161122, end: 20161201
  12. SIMVASTATIN. [Concomitant]
     Active Substance: SIMVASTATIN
  13. MULTI VITAMIN 50+ [Concomitant]
  14. MECLIZINE [Concomitant]
     Active Substance: MECLIZINE HYDROCHLORIDE

REACTIONS (1)
  - Withdrawal syndrome [None]

NARRATIVE: CASE EVENT DATE: 20161122
